FAERS Safety Report 6767201-9 (Version None)
Quarter: 2010Q2

REPORT INFORMATION
  Report Type: 
  Country: None (occurrence: None)
  Receive Date: 20100614
  Receipt Date: 20100601
  Transmission Date: 20101027
  Serious: Yes (Hospitalization, Other)
  Sender: FDA-Public Use
  Company Number: AR-JNJFOC-20090305382

PATIENT
  Sex: Male
  Weight: 89 kg

DRUGS (21)
  1. GOLIMUMAB [Suspect]
     Indication: RHEUMATOID ARTHRITIS
     Route: 058
  2. GOLIMUMAB [Suspect]
     Route: 058
  3. GOLIMUMAB [Suspect]
     Route: 058
  4. GOLIMUMAB [Suspect]
     Route: 058
  5. GOLIMUMAB [Suspect]
     Route: 058
  6. GOLIMUMAB [Suspect]
     Route: 058
  7. GOLIMUMAB [Suspect]
     Route: 058
  8. GOLIMUMAB [Suspect]
     Route: 042
  9. GOLIMUMAB [Suspect]
     Route: 042
  10. GOLIMUMAB [Suspect]
     Route: 042
  11. GOLIMUMAB [Suspect]
     Route: 042
  12. GOLIMUMAB [Suspect]
     Route: 042
  13. METHOTREXATE [Suspect]
     Indication: RHEUMATOID ARTHRITIS
     Route: 048
  14. METHOTREXATE [Suspect]
     Route: 048
  15. CALCIUM CARBONATE [Concomitant]
     Route: 048
  16. DICLOFENAC [Concomitant]
     Indication: RHEUMATOID ARTHRITIS
     Route: 048
  17. FOLIC ACID [Concomitant]
     Indication: PROPHYLAXIS
     Route: 048
  18. METHOTREXATE [Concomitant]
     Route: 048
  19. PREDNISONE [Concomitant]
     Indication: RHEUMATOID ARTHRITIS
     Route: 048
  20. SYSTANE R [Concomitant]
     Route: 047
  21. VITAMIN D [Concomitant]
     Route: 048

REACTIONS (12)
  - ABDOMINAL DISTENSION [None]
  - ABDOMINAL PAIN [None]
  - ADHESION [None]
  - CARCINOID TUMOUR [None]
  - DEHYDRATION [None]
  - DIVERTICULUM [None]
  - HEPATIC NEOPLASM [None]
  - INTESTINAL OBSTRUCTION [None]
  - PHLEBITIS [None]
  - PROSTATE CANCER [None]
  - RENAL CYST [None]
  - VOMITING [None]
